FAERS Safety Report 18444311 (Version 4)
Quarter: 2021Q1

REPORT INFORMATION
  Report Type: Report from Study
  Country: None (occurrence: US)
  Receive Date: 20201030
  Receipt Date: 20210118
  Transmission Date: 20210419
  Serious: Yes (Hospitalization, Other)
  Sender: FDA-Public Use
  Company Number: US-ABBVIE-20K-163-3624424-00

PATIENT
  Age: 73 Year
  Sex: Female
  Weight: 90.8 kg

DRUGS (6)
  1. HUMIRA [Suspect]
     Active Substance: ADALIMUMAB
     Indication: PSORIASIS
     Route: 058
     Dates: start: 2016
  2. HUMIRA [Suspect]
     Active Substance: ADALIMUMAB
     Route: 058
  3. FINASTERIDE. [Concomitant]
     Active Substance: FINASTERIDE
     Indication: ALOPECIA
  4. ZYRTEC [Concomitant]
     Active Substance: CETIRIZINE HYDROCHLORIDE
     Indication: HYPERSENSITIVITY
  5. FLONASE [Concomitant]
     Active Substance: FLUTICASONE PROPIONATE
     Indication: CONDITION AGGRAVATED
  6. ASPIRIN. [Concomitant]
     Active Substance: ASPIRIN
     Indication: CARDIAC DISORDER

REACTIONS (19)
  - Renal impairment [Recovered/Resolved]
  - Tooth fracture [Recovered/Resolved]
  - Kidney infection [Recovered/Resolved]
  - Dehydration [Unknown]
  - Renal cyst [Not Recovered/Not Resolved]
  - Vein disorder [Unknown]
  - Procedural pain [Unknown]
  - Skin cancer [Recovered/Resolved]
  - Nephritis [Unknown]
  - Ulcer [Unknown]
  - Kidney infection [Recovered/Resolved]
  - Nephrolithiasis [Recovered/Resolved]
  - Kidney enlargement [Unknown]
  - Constipation [Unknown]
  - Nephritis [Recovered/Resolved]
  - Tooth extraction [Unknown]
  - Renal function test abnormal [Unknown]
  - Nephritis [Recovered/Resolved]
  - Nephrolithiasis [Recovering/Resolving]

NARRATIVE: CASE EVENT DATE: 2017
